FAERS Safety Report 16484221 (Version 1)
Quarter: 2019Q2

REPORT INFORMATION
  Report Type: Spontaneous
  Country: NL (occurrence: NL)
  Receive Date: 20190627
  Receipt Date: 20190627
  Transmission Date: 20190711
  Serious: Yes (Other)
  Sender: FDA-Public Use
  Company Number: PHHY2019NL146049

PATIENT
  Age: 55 Year
  Sex: Female

DRUGS (1)
  1. SUMATRIPTAN SANDOZ [Suspect]
     Active Substance: SUMATRIPTAN
     Indication: PRODUCT USED FOR UNKNOWN INDICATION
     Dosage: 50 MG, UNK
     Route: 065

REACTIONS (5)
  - Syncope [Unknown]
  - Malaise [Unknown]
  - Hip fracture [Not Recovered/Not Resolved]
  - Loss of consciousness [Unknown]
  - Therapeutic response unexpected [Unknown]

NARRATIVE: CASE EVENT DATE: 20190201
